FAERS Safety Report 4763374-8 (Version None)
Quarter: 2005Q3

REPORT INFORMATION
  Report Type: 
  Country: None (occurrence: None)
  Receive Date: 20050908
  Receipt Date: 20050830
  Transmission Date: 20060218
  Serious: Yes (Other)
  Sender: FDA-Public Use
  Company Number: US-NOVOPROD-246633

PATIENT
  Sex: Female

DRUGS (1)
  1. NORDITROPIN? [Suspect]
     Indication: TURNER'S SYNDROME
     Route: 058

REACTIONS (1)
  - THROMBOCYTOPENIA [None]
